FAERS Safety Report 19274569 (Version 1)
Quarter: 2021Q2

REPORT INFORMATION
  Report Type: Spontaneous
  Country: IT (occurrence: IT)
  Receive Date: 20210519
  Receipt Date: 20210519
  Transmission Date: 20210717
  Serious: Yes (Hospitalization)
  Sender: FDA-Public Use
  Company Number: IT-TEVA-2021-IT-1912226

PATIENT
  Age: 6 Decade
  Sex: Male

DRUGS (7)
  1. DEXAMETHASONE. [Suspect]
     Active Substance: DEXAMETHASONE
     Indication: COVID-19 PNEUMONIA
     Dosage: 6 MILLIGRAM DAILY;
     Route: 042
  2. CEFTAROLINE [Concomitant]
     Active Substance: CEFTAROLINE
     Indication: SUPERINFECTION BACTERIAL
     Dosage: 1200 MILLIGRAM DAILY;
     Route: 042
  3. BETAMETHASONE. [Suspect]
     Active Substance: BETAMETHASONE
     Indication: COVID-19 PNEUMONIA
     Dosage: 4 MILLIGRAM DAILY;
     Route: 030
  4. ENOXAPARIN [Concomitant]
     Active Substance: ENOXAPARIN
     Indication: PROPHYLAXIS
     Dosage: AT INTERMEDIATE DOSAGE (80 UI/KG BID) FOR 10 D AND THEN AT PROPHYLACTIC DOSE OF 6000 UI QD
  5. CIPROFLOXACIN. [Concomitant]
     Active Substance: CIPROFLOXACIN
     Indication: COVID-19 PNEUMONIA
     Dosage: 1000 MILLIGRAM DAILY;
     Route: 048
  6. CEFTRIAXONE. [Concomitant]
     Active Substance: CEFTRIAXONE
     Indication: COVID-19 PNEUMONIA
     Dosage: 2 GRAM DAILY;
     Route: 030
  7. PREDNISONE. [Suspect]
     Active Substance: PREDNISONE
     Indication: COVID-19 PNEUMONIA
     Dosage: 25 MILLIGRAM DAILY;
     Route: 048

REACTIONS (1)
  - Pneumocystis jirovecii pneumonia [Recovered/Resolved]
